FAERS Safety Report 15680388 (Version 1)
Quarter: 2018Q4

REPORT INFORMATION
  Report Type: Spontaneous
  Country: GB (occurrence: GB)
  Receive Date: 20181203
  Receipt Date: 20181203
  Transmission Date: 20190205
  Serious: Yes (Hospitalization, Disabling, Other)
  Sender: FDA-Public Use
  Company Number: GB-TAKEDA-2018TUS034059

PATIENT
  Age: 26 Year
  Sex: Male
  Weight: 59.87 kg

DRUGS (5)
  1. ENTYVIO [Suspect]
     Active Substance: VEDOLIZUMAB
     Indication: COLITIS ULCERATIVE
     Route: 065
     Dates: start: 20181012, end: 20181012
  2. OMEPRAZOLE. [Concomitant]
     Active Substance: OMEPRAZOLE
     Dosage: UNK
  3. EPILIM [Concomitant]
     Active Substance: VALPROATE SODIUM
     Dosage: UNK
  4. PREDNISOLONE. [Concomitant]
     Active Substance: PREDNISOLONE
     Dosage: UNK
  5. MESALAZINE [Concomitant]
     Active Substance: MESALAMINE
     Dosage: UNK

REACTIONS (1)
  - Generalised tonic-clonic seizure [Recovered/Resolved]

NARRATIVE: CASE EVENT DATE: 20181012
